APPROVED DRUG PRODUCT: THIORIDAZINE HYDROCHLORIDE
Active Ingredient: THIORIDAZINE HYDROCHLORIDE
Strength: 50MG
Dosage Form/Route: TABLET;ORAL
Application: A089953 | Product #002
Applicant: SUN PHARMACEUTICAL INDUSTRIES INC
Approved: Aug 1, 1986 | RLD: No | RS: No | Type: DISCN